FAERS Safety Report 7790921-4 (Version None)
Quarter: 2011Q3

REPORT INFORMATION
  Report Type: 
  Country: None (occurrence: None)
  Receive Date: 20110930
  Receipt Date: 20110930
  Transmission Date: 20111222
  Serious: Yes (Other)
  Sender: FDA-Public Use
  Company Number: None

PATIENT
  Age: 48 Year
  Sex: Female
  Weight: 78.017 kg

DRUGS (2)
  1. TRAMADOL HCL [Suspect]
     Indication: SPINAL OSTEOARTHRITIS
     Dosage: 75MG
     Route: 048
     Dates: start: 20100801, end: 20110731
  2. TRAMADOL HCL [Suspect]
     Indication: SURGERY
     Dosage: 75MG
     Route: 048
     Dates: start: 20100801, end: 20110731

REACTIONS (10)
  - CHILLS [None]
  - VOMITING [None]
  - INSOMNIA [None]
  - WEIGHT DECREASED [None]
  - HOT FLUSH [None]
  - MALAISE [None]
  - HYPERHIDROSIS [None]
  - ANXIETY [None]
  - NAUSEA [None]
  - DRUG WITHDRAWAL SYNDROME [None]
